FAERS Safety Report 25627009 (Version 1)
Quarter: 2025Q3

REPORT INFORMATION
  Report Type: Spontaneous
  Country: EU (occurrence: EU)
  Receive Date: 20250731
  Receipt Date: 20250731
  Transmission Date: 20251020
  Serious: Yes (Death, Hospitalization, Other)
  Sender: CADILA
  Company Number: EU-CPL-005562

PATIENT
  Age: 72 Year
  Sex: Male

DRUGS (7)
  1. ROSUVASTATIN [Interacting]
     Active Substance: ROSUVASTATIN
     Indication: Product used for unknown indication
  2. RELUGOLIX [Interacting]
     Active Substance: RELUGOLIX
     Indication: Hormone-refractory prostate cancer
  3. ABIRATERONE [Interacting]
     Active Substance: ABIRATERONE
     Indication: Hormone-refractory prostate cancer
  4. BISOPROLOL [Concomitant]
     Active Substance: BISOPROLOL
  5. HYDROMORPHONE HYDROCHLORIDE [Concomitant]
     Active Substance: HYDROMORPHONE HYDROCHLORIDE
  6. PANTOPRAZOLE [Concomitant]
     Active Substance: PANTOPRAZOLE
  7. PREGABALIN [Concomitant]
     Active Substance: PREGABALIN

REACTIONS (2)
  - Nephropathy toxic [Fatal]
  - Drug interaction [Fatal]
